FAERS Safety Report 6077022-0 (Version None)
Quarter: 2009Q1

REPORT INFORMATION
  Report Type: 
  Country: None (occurrence: None)
  Receive Date: 20090211
  Receipt Date: 20090211
  Transmission Date: 20090719
  Serious: Yes (Hospitalization)
  Sender: FDA-Public Use
  Company Number: None

PATIENT
  Age: 77 Year
  Sex: Male
  Weight: 80.74 kg

DRUGS (1)
  1. IBUPROFEN [Suspect]
     Indication: PAIN
     Dosage: 600 MG QID PO
     Route: 048
     Dates: start: 20090114, end: 20090127

REACTIONS (2)
  - ANAEMIA [None]
  - GASTROINTESTINAL HAEMORRHAGE [None]
